FAERS Safety Report 4613940-5 (Version None)
Quarter: 2005Q1

REPORT INFORMATION
  Report Type: 
  Country: None (occurrence: None)
  Receive Date: 20050315
  Receipt Date: 20050304
  Transmission Date: 20050727
  Serious: Yes (Death, Life-Threatening)
  Sender: FDA-Public Use
  Company Number: 2005-00475

PATIENT

DRUGS (1)
  1. VELCADE [Suspect]
     Indication: MULTIPLE MYELOMA
     Dosage: 1.30 MG/M2, 2/WEEK
     Dates: start: 20030810, end: 20030810

REACTIONS (5)
  - BLOOD CALCIUM DECREASED [None]
  - BLOOD POTASSIUM DECREASED [None]
  - CARDIOGENIC SHOCK [None]
  - GUILLAIN-BARRE SYNDROME [None]
  - PULMONARY OEDEMA [None]
